FAERS Safety Report 8204722 (Version 2)
Quarter: 2012Q4

REPORT INFORMATION
  Report Type: 
  Country: US (occurrence: US)
  Receive Date: 20111027
  Receipt Date: 20121023
  Transmission Date: 20130627
  Serious: No
  Sender: FDA-Public Use
  Company Number: US-AMGEN-USASP2010006880

PATIENT
  Age: 65 Year
  Sex: Female
  Weight: 44.44 kg

DRUGS (9)
  1. ENBREL [Suspect]
     Indication: PRODUCT USED FOR UNKNOWN INDICATION
     Dosage: 50 mg, qwk
     Route: 058
  2. DOLOBID [Concomitant]
     Dosage: 250 mg, UNK
  3. FOSAMAX [Concomitant]
     Dosage: 10 mg, UNK
  4. OGEN [Concomitant]
     Dosage: 0.625 UNK, UNK
  5. RESTASIS EMU [Concomitant]
     Dosage: 0.05 %, UNK
  6. PLAQUENIL [Concomitant]
     Dosage: 200 mg, UNK
  7. ARAVA [Concomitant]
     Dosage: 10 mg, UNK
  8. DOXEPIN HCL [Concomitant]
     Dosage: 10 mg, UNK
  9. FOLIC ACID [Concomitant]
     Dosage: 200 mug, UNK

REACTIONS (4)
  - Injection site reaction [Unknown]
  - Injection site swelling [Unknown]
  - Injection site erythema [Unknown]
  - Injection site warmth [Unknown]
